FAERS Safety Report 10452478 (Version 1)
Quarter: 2014Q3

REPORT INFORMATION
  Report Type: Spontaneous
  Country: US (occurrence: US)
  Receive Date: 20140915
  Receipt Date: 20140915
  Transmission Date: 20150326
  Serious: No
  Sender: FDA-Public Use
  Company Number: US-ASTRAZENECA-2014SE66948

PATIENT
  Sex: Female

DRUGS (2)
  1. TOPROL XL [Suspect]
     Active Substance: METOPROLOL SUCCINATE
     Indication: HYPERTENSION
     Route: 048
     Dates: start: 2013
  2. TOPROL XL [Suspect]
     Active Substance: METOPROLOL SUCCINATE
     Indication: HYPERTENSION
     Dosage: METROPROLOL SUCCINATE- MYLAN, 25 MG, BID
     Route: 048

REACTIONS (9)
  - Dizziness [Unknown]
  - Dyspnoea [Unknown]
  - Intentional product misuse [Unknown]
  - Drug ineffective [Unknown]
  - Activities of daily living impaired [Unknown]
  - Anxiety [Unknown]
  - Non-cardiac chest pain [Unknown]
  - Adverse drug reaction [Unknown]
  - Off label use [Unknown]
